FAERS Safety Report 5844652-8 (Version None)
Quarter: 2008Q3

REPORT INFORMATION
  Report Type: 
  Country: None (occurrence: None)
  Receive Date: 20080814
  Receipt Date: 20080806
  Transmission Date: 20090109
  Serious: No
  Sender: FDA-Public Use
  Company Number: US-JNJFOC-20080706320

PATIENT
  Sex: Female
  Weight: 57.15 kg

DRUGS (12)
  1. REMICADE [Suspect]
     Indication: COLITIS
     Route: 042
  2. IMURAN [Concomitant]
     Indication: COLITIS
  3. COLAZOL [Concomitant]
     Indication: COLITIS
  4. LEVSIN [Concomitant]
  5. BENTYL [Concomitant]
  6. AMITRIPTYLINE HCL [Concomitant]
  7. POTASSIUM CHLORIDE [Concomitant]
  8. IRON [Concomitant]
  9. ZOFRAN [Concomitant]
     Indication: NAUSEA
  10. CIPRO [Concomitant]
  11. PREDNISONE TAB [Concomitant]
  12. FLAGYL [Concomitant]

REACTIONS (1)
  - ROSACEA [None]
